FAERS Safety Report 5942251-0 (Version None)
Quarter: 2008Q4

REPORT INFORMATION
  Report Type: 
  Country: None (occurrence: None)
  Receive Date: 20081031
  Receipt Date: 20081017
  Transmission Date: 20090506
  Serious: Yes (Other)
  Sender: FDA-Public Use
  Company Number: 2280705-2008-00007

PATIENT
  Sex: Male
  Weight: 10 kg

DRUGS (2)
  1. BABY ORAJEL LIQUID TEETHING MEDICINE [Suspect]
     Indication: TEETHING
     Dosage: 060
     Dates: start: 20080713
  2. TYLENOL [Concomitant]

REACTIONS (4)
  - DIARRHOEA [None]
  - HYPOTONIA [None]
  - PYREXIA [None]
  - SKIN DISCOLOURATION [None]
